FAERS Safety Report 9181975 (Version 1)
Quarter: 2013Q1

REPORT INFORMATION
  Report Type: Spontaneous
  Country: US (occurrence: US)
  Receive Date: 20130322
  Receipt Date: 20130322
  Transmission Date: 20140127
  Serious: Yes (Death, Hospitalization)
  Sender: FDA-Public Use
  Company Number: US-JNJFOC-2002127310US

PATIENT
  Age: 63 Year
  Sex: Female

DRUGS (4)
  1. MOTRIN [Suspect]
     Indication: COMPLETED SUICIDE
     Dosage: DAILY DOSE TEXT: UNK, UNK
     Route: 048
  2. GLUCOPHAGE [Concomitant]
     Indication: PRODUCT USED FOR UNKNOWN INDICATION
     Dosage: DAILY DOSE TEXT: UNK, UNK
     Route: 048
  3. CLONAZEPAM [Concomitant]
     Indication: PRODUCT USED FOR UNKNOWN INDICATION
     Dosage: DAILY DOSE TEXT: UNK, UNK
     Route: 048
  4. SYNTHROID [Concomitant]
     Indication: PRODUCT USED FOR UNKNOWN INDICATION

REACTIONS (8)
  - Suicide attempt [Fatal]
  - Tachycardia [Fatal]
  - Hypotension [Fatal]
  - Acidosis [Fatal]
  - Electrocardiogram abnormal [Fatal]
  - Hyperglycaemia [Fatal]
  - Hyperkalaemia [Fatal]
  - Blood creatinine increased [Fatal]
